FAERS Safety Report 20901953 (Version 3)
Quarter: 2022Q3

REPORT INFORMATION
  Report Type: Spontaneous
  Country: US (occurrence: US)
  Receive Date: 20220601
  Receipt Date: 20220704
  Transmission Date: 20221027
  Serious: Yes (Other)
  Sender: FDA-Public Use
  Company Number: US-JNJFOC-20220550002

PATIENT
  Sex: Female
  Weight: 47.63 kg

DRUGS (3)
  1. ULTRAM [Suspect]
     Active Substance: TRAMADOL HYDROCHLORIDE
     Indication: Muscle relaxant therapy
     Dosage: 15 YEARS AGO
     Route: 048
  2. IBUPROFEN [Suspect]
     Active Substance: IBUPROFEN
     Indication: Pain
     Route: 065
  3. DEPO-PROVERA [Suspect]
     Active Substance: MEDROXYPROGESTERONE ACETATE
     Indication: Contraception
     Route: 065
     Dates: start: 1999, end: 2007

REACTIONS (9)
  - Narcolepsy [Unknown]
  - Multiple drug therapy [Unknown]
  - Dysmenorrhoea [Unknown]
  - Back pain [Unknown]
  - Headache [Not Recovered/Not Resolved]
  - Drug ineffective [Unknown]
  - Muscle tightness [Unknown]
  - Osteopenia [Not Recovered/Not Resolved]
  - Migraine [Unknown]
